FAERS Safety Report 19478922 (Version 2)
Quarter: 2021Q3

REPORT INFORMATION
  Report Type: Spontaneous
  Country: US (occurrence: US)
  Receive Date: 20210630
  Receipt Date: 20210712
  Transmission Date: 20211014
  Serious: No
  Sender: FDA-Public Use
  Company Number: US-MYLANLABS-2021M1037060

PATIENT
  Sex: Female
  Weight: 79.37 kg

DRUGS (1)
  1. LEVOTHYROXINE SODIUM TABLETS, USP [Suspect]
     Active Substance: LEVOTHYROXINE SODIUM
     Indication: PRODUCT USED FOR UNKNOWN INDICATION
     Dosage: 50 MILLIGRAM

REACTIONS (4)
  - Suspected counterfeit product [Unknown]
  - Hangover [Unknown]
  - Mental disorder [Unknown]
  - Somnolence [Unknown]
